FAERS Safety Report 17452390 (Version 2)
Quarter: 2020Q4

REPORT INFORMATION
  Report Type: Report from Study
  Country: CA (occurrence: CA)
  Receive Date: 20200224
  Receipt Date: 20201224
  Transmission Date: 20210113
  Serious: Yes (Other)
  Sender: FDA-Public Use
  Company Number: CA-JNJFOC-20200217919

PATIENT
  Age: 46 Year
  Sex: Male
  Weight: 62.2 kg

DRUGS (2)
  1. STELARA [Suspect]
     Active Substance: USTEKINUMAB
     Indication: CROHN^S DISEASE
     Dosage: BATCH- KES2MME, EXPIRY- APR-2023
     Route: 058
     Dates: start: 200404
  2. STELARA [Suspect]
     Active Substance: USTEKINUMAB

REACTIONS (4)
  - Fistula [Not Recovered/Not Resolved]
  - Cystitis [Not Recovered/Not Resolved]
  - Infected fistula [Unknown]
  - Influenza [Recovering/Resolving]

NARRATIVE: CASE EVENT DATE: 20200128
